FAERS Safety Report 6892233-X (Version None)
Quarter: 2010Q3

REPORT INFORMATION
  Report Type: 
  Country: None (occurrence: None)
  Receive Date: 20100731
  Receipt Date: 20080416
  Transmission Date: 20110219
  Serious: No
  Sender: FDA-Public Use
  Company Number: US-PFIZER INC-2008003228

PATIENT
  Sex: Female
  Weight: 81.65 kg

DRUGS (5)
  1. NORVASC [Suspect]
     Indication: HYPERTENSION
     Dates: start: 20071101
  2. LEVOTHYROXINE SODIUM [Concomitant]
  3. PEPCID [Concomitant]
  4. LUVOX [Concomitant]
  5. COZAAR [Concomitant]

REACTIONS (2)
  - DRUG INEFFECTIVE [None]
  - EXPIRED DRUG ADMINISTERED [None]
